FAERS Safety Report 23324518 (Version 5)
Quarter: 2025Q2

REPORT INFORMATION
  Report Type: Spontaneous
  Country: US (occurrence: US)
  Receive Date: 20231221
  Receipt Date: 20250606
  Transmission Date: 20250717
  Serious: Yes (Disabling, Other)
  Sender: AMGEN
  Company Number: US-HORIZON THERAPEUTICS-HZN-2023-010719

PATIENT
  Age: 52 Year
  Sex: Female
  Weight: 95 kg

DRUGS (56)
  1. TEPEZZA [Suspect]
     Active Substance: TEPROTUMUMAB-TRBW
     Indication: Graves^ disease
     Route: 042
     Dates: start: 20200724
  2. TEPEZZA [Suspect]
     Active Substance: TEPROTUMUMAB-TRBW
     Indication: Endocrine ophthalmopathy
     Route: 042
     Dates: start: 20200929
  3. TEPEZZA [Suspect]
     Active Substance: TEPROTUMUMAB-TRBW
     Route: 042
     Dates: start: 202012
  4. TAPAZOLE [Concomitant]
     Active Substance: METHIMAZOLE
     Dosage: 10 MILLIGRAM, QD
     Route: 048
     Dates: start: 202006
  5. TAPAZOLE [Concomitant]
     Active Substance: METHIMAZOLE
     Dosage: 5 MILLIGRAM, QD
     Route: 048
     Dates: start: 202006
  6. TAPAZOLE [Concomitant]
     Active Substance: METHIMAZOLE
     Dosage: 2.5 MILLIGRAM, BID (ALTERNATING 5 MILLIGRAM)
     Route: 048
     Dates: start: 202006
  7. ATENOLOL [Concomitant]
     Active Substance: ATENOLOL
     Dosage: 50 MILLIGRAM, QD
     Route: 048
  8. NEXIUM [Concomitant]
     Active Substance: ESOMEPRAZOLE MAGNESIUM
     Dosage: 20 MILLIGRAM, QD
     Route: 048
  9. IBUPROFEN AND FAMOTIDINE [Concomitant]
     Active Substance: FAMOTIDINE\IBUPROFEN
     Dosage: 400 MILLIGRAM, TID
     Route: 048
  10. ESOMEPRAZOLE MAGNESIUM [Concomitant]
     Active Substance: ESOMEPRAZOLE MAGNESIUM
     Dosage: 20 MILLIGRAM, QD
     Route: 048
  11. ACETAMINOPHEN [Concomitant]
     Active Substance: ACETAMINOPHEN
     Route: 040
  12. TENORMIN [Concomitant]
     Active Substance: ATENOLOL
     Dosage: 50 MILLIGRAM, QD
     Route: 048
  13. ASPIRIN [Concomitant]
     Active Substance: ASPIRIN
     Dosage: 81 MILLIGRAM, QD
     Route: 048
  14. CHOLECALCIFEROL [Concomitant]
     Active Substance: CHOLECALCIFEROL
     Dosage: 2 UNK, QD
     Route: 048
  15. LIPITOR [Concomitant]
     Active Substance: ATORVASTATIN CALCIUM
     Dosage: 10 MILLIGRAM, QD
     Route: 048
  16. LIPITOR [Concomitant]
     Active Substance: ATORVASTATIN CALCIUM
     Dosage: 20 MILLIGRAM, QD
     Route: 048
  17. WELLBUTRIN [Concomitant]
     Active Substance: BUPROPION HYDROCHLORIDE
     Dosage: 300 MILLIGRAM, QD
     Route: 048
  18. TIMOPTIC [Concomitant]
     Active Substance: TIMOLOL MALEATE
     Dosage: UNK UNK, BID (0.5 %)
     Route: 047
  19. COZAAR [Concomitant]
     Active Substance: LOSARTAN POTASSIUM
     Dosage: 50 MILLIGRAM, QD
     Route: 048
  20. OZEMPIC [Concomitant]
     Active Substance: SEMAGLUTIDE
     Dosage: 1 MILLIGRAM, QD
  21. OZEMPIC [Concomitant]
     Active Substance: SEMAGLUTIDE
     Dosage: 2 MILLIGRAM, QWK
  22. OZEMPIC [Concomitant]
     Active Substance: SEMAGLUTIDE
     Dosage: 2 MILLIGRAM, QWK,  [(2 MILLIGRAM/DOSE (8 MG/3 ML)]
     Route: 058
  23. VITAMIN D3 [Concomitant]
     Active Substance: CHOLECALCIFEROL
     Dosage: 2000 UNIT, QD
     Route: 048
  24. Lancetan [Concomitant]
     Dosage: UNK UNK, TID
  25. ASPIRIN [Concomitant]
     Active Substance: ASPIRIN
     Dosage: 81 MILLIGRAM, QD
     Route: 048
  26. GLUCOPHAGE [Concomitant]
     Active Substance: METFORMIN HYDROCHLORIDE
     Dosage: 500 MILLIGRAM, QD (WITH DINNER)
     Route: 048
  27. NORVASC [Concomitant]
     Active Substance: AMLODIPINE BESYLATE
     Dosage: 5 MILLIGRAM, QD
     Route: 048
  28. TYLENOL [Concomitant]
     Active Substance: ACETAMINOPHEN
     Dosage: 500 MILLIGRAM, QD
     Route: 048
  29. DELTASONE [Concomitant]
     Active Substance: PREDNISONE
     Dosage: 20 MILLIGRAM, QD
     Route: 065
     Dates: start: 20210120, end: 20210416
  30. MARCAINE [Concomitant]
     Active Substance: BUPIVACAINE HYDROCHLORIDE
     Route: 058
     Dates: start: 20210315, end: 20210315
  31. EPINEPHRINE\LIDOCAINE HYDROCHLORIDE [Concomitant]
     Active Substance: EPINEPHRINE\LIDOCAINE HYDROCHLORIDE
     Route: 058
  32. STERILE WATER [Concomitant]
     Active Substance: WATER
  33. LACTATED RINGERS SOLUTION [Concomitant]
     Active Substance: CALCIUM CHLORIDE\POTASSIUM CHLORIDE\SODIUM CHLORIDE\SODIUM LACTATE
  34. FENTANYL [Concomitant]
     Active Substance: FENTANYL
     Route: 040
  35. FENTANYL [Concomitant]
     Active Substance: FENTANYL
     Route: 040
  36. XYLOCAINE [Concomitant]
     Active Substance: LIDOCAINE HYDROCHLORIDE
     Route: 040
     Dates: start: 20210315
  37. SUCCINYLCHOLINE [Concomitant]
     Active Substance: SUCCINYLCHOLINE
     Route: 040
     Dates: start: 20210315
  38. ONDANSETRON [Concomitant]
     Active Substance: ONDANSETRON
     Route: 040
     Dates: start: 20210315
  39. PROPOFOL [Concomitant]
     Active Substance: PROPOFOL
     Route: 040
     Dates: start: 20210315
  40. DEXAMETHASONE [Concomitant]
     Active Substance: DEXAMETHASONE
     Route: 040
     Dates: start: 20210321
  41. ANCEF [Concomitant]
     Active Substance: CEFAZOLIN SODIUM
     Route: 040
     Dates: start: 20210315
  42. DEXMEDETOMIDINE [Concomitant]
     Active Substance: DEXMEDETOMIDINE
     Route: 040
     Dates: start: 20210315
  43. DEXMEDETOMIDINE [Concomitant]
     Active Substance: DEXMEDETOMIDINE
     Route: 040
  44. PHENYLEPHRINE [Concomitant]
     Active Substance: PHENYLEPHRINE
     Route: 040
     Dates: start: 20210315
  45. PHENYLEPHRINE [Concomitant]
     Active Substance: PHENYLEPHRINE
     Route: 040
     Dates: start: 20210315
  46. PROMETHAZINE [Concomitant]
     Active Substance: PROMETHAZINE HYDROCHLORIDE
     Route: 040
     Dates: start: 20210315
  47. MAXITROL [Concomitant]
     Active Substance: DEXAMETHASONE\NEOMYCIN SULFATE\POLYMYXIN B SULFATE
     Route: 047
     Dates: start: 20210315, end: 20210416
  48. ZOFRAN [Concomitant]
     Active Substance: ONDANSETRON HYDROCHLORIDE
     Indication: Nausea
     Dosage: 8 MILLIGRAM, Q8H
     Route: 065
     Dates: start: 20210315, end: 20210322
  49. ZOFRAN [Concomitant]
     Active Substance: ONDANSETRON HYDROCHLORIDE
     Indication: Vomiting
  50. BETADINE [Concomitant]
     Active Substance: POVIDONE-IODINE
     Route: 065
  51. Romycin [Concomitant]
     Route: 065
  52. SODIUM CHLORIDE [Concomitant]
     Active Substance: SODIUM CHLORIDE
  53. SUBLIMAZE [Concomitant]
     Active Substance: FENTANYL CITRATE
     Indication: Pain
     Route: 065
     Dates: start: 20210315
  54. LANOLIN\PARAFFIN [Concomitant]
     Active Substance: LANOLIN\PARAFFIN
     Route: 047
  55. MIDAZOLAM [Concomitant]
     Active Substance: MIDAZOLAM
     Route: 040
     Dates: start: 20210315
  56. LIDOCAINE [Concomitant]
     Active Substance: LIDOCAINE
     Route: 040
     Dates: start: 20210315

REACTIONS (42)
  - Deafness neurosensory [Not Recovered/Not Resolved]
  - Physical disability [Unknown]
  - Injury [Not Recovered/Not Resolved]
  - Pain [Unknown]
  - Emotional distress [Unknown]
  - Economic problem [Not Recovered/Not Resolved]
  - Concomitant disease aggravated [Unknown]
  - Discomfort [Unknown]
  - Anxiety [Unknown]
  - Impaired quality of life [Unknown]
  - Vertigo [Unknown]
  - Dizziness [Unknown]
  - Arthralgia [Unknown]
  - Rhinitis [Unknown]
  - Oral herpes [Unknown]
  - Eyelid disorder [Not Recovered/Not Resolved]
  - Lacrimation increased [Not Recovered/Not Resolved]
  - Vision blurred [Recovering/Resolving]
  - Eye pain [Not Recovered/Not Resolved]
  - Eye pruritus [Not Recovered/Not Resolved]
  - Dry eye [Not Recovered/Not Resolved]
  - Product quality issue [Unknown]
  - Hot flush [Unknown]
  - Initial insomnia [Unknown]
  - Obesity [Unknown]
  - Wheezing [Unknown]
  - Night sweats [Unknown]
  - Head discomfort [Recovered/Resolved]
  - Neuralgia [Unknown]
  - Pain in extremity [Unknown]
  - Ear discomfort [Unknown]
  - Weight decreased [Unknown]
  - Tinnitus [Not Recovered/Not Resolved]
  - Headache [Not Recovered/Not Resolved]
  - Nausea [Unknown]
  - Fatigue [Unknown]
  - Dysgeusia [Recovered/Resolved]
  - Alopecia [Unknown]
  - Muscle spasms [Unknown]
  - Diarrhoea [Unknown]
  - Oxygen saturation abnormal [Unknown]
  - Therapeutic product effect incomplete [Unknown]

NARRATIVE: CASE EVENT DATE: 20200101
